FAERS Safety Report 13871774 (Version 1)
Quarter: 2017Q3

REPORT INFORMATION
  Report Type: Spontaneous
  Country: MX (occurrence: MX)
  Receive Date: 20170816
  Receipt Date: 20170816
  Transmission Date: 20171127
  Serious: Yes (Other)
  Sender: FDA-Public Use
  Company Number: MX-009507513-1708MEX005140

PATIENT
  Age: 24 Year
  Sex: Female

DRUGS (1)
  1. IMPLANON [Suspect]
     Active Substance: ETONOGESTREL
     Indication: PRODUCT USED FOR UNKNOWN INDICATION
     Dosage: 1 DF, UNK
     Route: 059
     Dates: start: 20170805

REACTIONS (2)
  - Implant site paraesthesia [Unknown]
  - Complication of drug implant insertion [Unknown]

NARRATIVE: CASE EVENT DATE: 201708
